FAERS Safety Report 12372261 (Version 2)
Quarter: 2016Q3

REPORT INFORMATION
  Report Type: Spontaneous
  Country: BR (occurrence: BR)
  Receive Date: 20160516
  Receipt Date: 20160715
  Transmission Date: 20161109
  Serious: Yes (Other)
  Sender: FDA-Public Use
  Company Number: BR-SA-2016SA092215

PATIENT
  Sex: Female

DRUGS (1)
  1. CLEXANE [Suspect]
     Active Substance: ENOXAPARIN SODIUM
     Indication: HYPERCOAGULATION
     Dosage: FOR 21 WEEKS
     Route: 051

REACTIONS (4)
  - Pain [Unknown]
  - Disability [Unknown]
  - Premature separation of placenta [Unknown]
  - Foetal exposure timing unspecified [Unknown]
